FAERS Safety Report 7689507-1 (Version None)
Quarter: 2011Q3

REPORT INFORMATION
  Report Type: 
  Country: None (occurrence: None)
  Receive Date: 20110817
  Receipt Date: 20110720
  Transmission Date: 20111222
  Serious: No
  Sender: FDA-Public Use
  Company Number: US-TYCO HEALTHCARE/MALLINCKRODT-T201101451

PATIENT
  Sex: Female
  Weight: 126.98 kg

DRUGS (1)
  1. FENTANYL-100 [Suspect]

REACTIONS (3)
  - INFLUENZA LIKE ILLNESS [None]
  - FATIGUE [None]
  - APPLICATION SITE BURN [None]
